FAERS Safety Report 9471047 (Version 2)
Quarter: 2013Q3

REPORT INFORMATION
  Report Type: Spontaneous
  Country: US (occurrence: US)
  Receive Date: 20130822
  Receipt Date: 20130906
  Transmission Date: 20140515
  Serious: No
  Sender: FDA-Public Use
  Company Number: US-PFIZER INC-2013242463

PATIENT
  Age: 60 Year
  Sex: 0

DRUGS (1)
  1. EFFEXOR [Suspect]
     Dosage: UNK

REACTIONS (3)
  - Drug hypersensitivity [Unknown]
  - Insomnia [Unknown]
  - Decreased appetite [Unknown]
